FAERS Safety Report 13024086 (Version 1)
Quarter: 2016Q4

REPORT INFORMATION
  Report Type: Spontaneous
  Country: PT (occurrence: PT)
  Receive Date: 20161213
  Receipt Date: 20161213
  Transmission Date: 20170207
  Serious: Yes (Other)
  Sender: FDA-Public Use
  Company Number: PT-TEVA-715110ISR

PATIENT
  Sex: Male

DRUGS (2)
  1. TANSULOSINA RATIOPHARM [Suspect]
     Active Substance: TAMSULOSIN
     Indication: BENIGN PROSTATIC HYPERPLASIA
     Route: 048
     Dates: start: 20161101
  2. CIPROFLOXACIN. [Concomitant]
     Active Substance: CIPROFLOXACIN
     Route: 048
     Dates: start: 20161101

REACTIONS (10)
  - Urinary retention [Recovered/Resolved]
  - Prostatomegaly [Not Recovered/Not Resolved]
  - Incorrect dose administered [None]
  - Urinary incontinence [Unknown]
  - Syncope [Recovered/Resolved]
  - Bladder pain [Recovered/Resolved]
  - Accidental overdose [Unknown]
  - Mouth injury [Unknown]
  - Drug ineffective [Unknown]
  - Malaise [Unknown]

NARRATIVE: CASE EVENT DATE: 20161103
